FAERS Safety Report 4382888-6 (Version None)
Quarter: 2004Q2

REPORT INFORMATION
  Report Type: 
  Country: None (occurrence: None)
  Receive Date: 20040617
  Receipt Date: 20040611
  Transmission Date: 20050107
  Serious: Yes (Hospitalization)
  Sender: FDA-Public Use
  Company Number: 8196

PATIENT
  Age: 69 Year
  Sex: Male

DRUGS (11)
  1. LEUCOVORIN [Suspect]
     Indication: COLORECTAL CANCER
     Dosage: 360 MG FREQ UNK IV
     Route: 042
     Dates: start: 20040421, end: 20040421
  2. FLUOROURACIL [Suspect]
     Indication: COLORECTAL CANCER
     Dosage: 1080 MG FREQ IV
     Route: 042
     Dates: start: 20040421, end: 20040421
  3. OXALIPLATIN [Suspect]
     Indication: COLORECTAL CANCER
     Dosage: 153 MG FREQ IV
     Route: 042
     Dates: start: 20040421, end: 20040421
  4. CETUXIMAB [Concomitant]
  5. LOVENOX [Concomitant]
  6. NEUPOGEN [Concomitant]
  7. ACYCLOVIR [Concomitant]
  8. MINOCYCLINE [Concomitant]
  9. LOPERAMIDE HCL [Concomitant]
  10. PRAZOSIN HCL [Concomitant]
  11. PROZAC [Concomitant]

REACTIONS (2)
  - DYSPNOEA [None]
  - PNEUMONIA [None]
